FAERS Safety Report 12177066 (Version 1)
Quarter: 2016Q1

REPORT INFORMATION
  Report Type: Spontaneous
  Country: US (occurrence: US)
  Receive Date: 20160314
  Receipt Date: 20160314
  Transmission Date: 20160526
  Serious: No
  Sender: FDA-Public Use
  Company Number: US-ENDO PHARMACEUTICALS INC.-2015-000851

PATIENT
  Sex: Male

DRUGS (1)
  1. CYCLOBENZAPRINE HYDROCHLORIDE 10MG [Suspect]
     Active Substance: CYCLOBENZAPRINE HYDROCHLORIDE
     Indication: MUSCLE SPASMS
     Route: 065

REACTIONS (1)
  - Drug effect decreased [Recovered/Resolved]
